FAERS Safety Report 10201408 (Version 2)
Quarter: 2014Q2

REPORT INFORMATION
  Report Type: Spontaneous
  Country: US (occurrence: US)
  Receive Date: 20140528
  Receipt Date: 20140605
  Transmission Date: 20141212
  Serious: No
  Sender: FDA-Public Use
  Company Number: US-009507513-1405USA004276

PATIENT
  Age: 52 Year
  Sex: Female

DRUGS (2)
  1. OXYTROL FOR WOMEN [Suspect]
     Indication: POLLAKIURIA
     Dosage: USE PATCH EVERY 4 DAYS
     Route: 062
     Dates: start: 201403, end: 201405
  2. ESTRADIOL [Suspect]

REACTIONS (1)
  - Drug ineffective [Not Recovered/Not Resolved]
